FAERS Safety Report 15372995 (Version 1)
Quarter: 2018Q3

REPORT INFORMATION
  Report Type: Spontaneous
  Country: CN (occurrence: CN)
  Receive Date: 20180912
  Receipt Date: 20180912
  Transmission Date: 20181010
  Serious: Yes (Other)
  Sender: FDA-Public Use
  Company Number: CN-009507513-1809CHN003681

PATIENT
  Age: 77 Year
  Sex: Female

DRUGS (2)
  1. VORICONAZOLE. [Concomitant]
     Active Substance: VORICONAZOLE
     Dosage: UNK
     Route: 041
     Dates: start: 20180830
  2. TIENAM [Suspect]
     Active Substance: CILASTATIN SODIUM\IMIPENEM
     Dosage: 0.5 G, Q6H
     Route: 041
     Dates: start: 20180827

REACTIONS (2)
  - Delirium [Recovering/Resolving]
  - Dysphoria [Recovering/Resolving]

NARRATIVE: CASE EVENT DATE: 20180831
